FAERS Safety Report 24651456 (Version 1)
Quarter: 2024Q4

REPORT INFORMATION
  Report Type: Report from Study
  Country: IL (occurrence: IL)
  Receive Date: 20241122
  Receipt Date: 20241122
  Transmission Date: 20250115
  Serious: Yes (Hospitalization, Other)
  Sender: ABBVIE
  Company Number: IL-ABBVIE-6009423

PATIENT
  Age: 41 Year
  Sex: Male

DRUGS (1)
  1. SKYRIZI [Suspect]
     Active Substance: RISANKIZUMAB-RZAA
     Indication: Crohn^s disease
     Dosage: FORM STRENGTH 360 MILLIGRAMS.
     Route: 058
     Dates: start: 20231001

REACTIONS (3)
  - Gastrointestinal scarring [Unknown]
  - Stoma closure [Unknown]
  - Intestinal barrier dysfunction [Unknown]

NARRATIVE: CASE EVENT DATE: 20241001
